FAERS Safety Report 13614404 (Version 2)
Quarter: 2017Q3

REPORT INFORMATION
  Report Type: Report from Study
  Country: US (occurrence: US)
  Receive Date: 20170606
  Receipt Date: 20170804
  Transmission Date: 20171127
  Serious: Yes (Hospitalization, Other)
  Sender: FDA-Public Use
  Company Number: US-ELI_LILLY_AND_COMPANY-US201705011040

PATIENT
  Age: 59 Year
  Sex: Female

DRUGS (3)
  1. INSULIN, LISPRO [Suspect]
     Active Substance: INSULIN LISPRO
     Dosage: UNK, UNKNOWN
     Route: 058
  2. INSULIN, LISPRO [Suspect]
     Active Substance: INSULIN LISPRO
     Indication: PRODUCT USED FOR UNKNOWN INDICATION
     Dosage: UNK, UNKNOWN
     Route: 065
  3. INSULIN, LISPRO [Suspect]
     Active Substance: INSULIN LISPRO
     Indication: PRODUCT USED FOR UNKNOWN INDICATION
     Dosage: UNK, UNKNOWN
     Route: 058

REACTIONS (12)
  - Disorientation [Recovered/Resolved]
  - Syncope [Recovering/Resolving]
  - Pollakiuria [Unknown]
  - Blood glucose increased [Recovered/Resolved]
  - Joint injury [Recovering/Resolving]
  - Blood glucose increased [Recovered/Resolved]
  - Blood glucose increased [Unknown]
  - Head injury [Recovering/Resolving]
  - Contusion [Recovering/Resolving]
  - Eye injury [Recovering/Resolving]
  - Malaise [Unknown]
  - Fall [Unknown]

NARRATIVE: CASE EVENT DATE: 201705
